FAERS Safety Report 24045680 (Version 2)
Quarter: 2024Q3

REPORT INFORMATION
  Report Type: Spontaneous
  Country: AT (occurrence: AT)
  Receive Date: 20240703
  Receipt Date: 20240809
  Transmission Date: 20241017
  Serious: Yes (Other)
  Sender: VELOXIS PHARMACEUTICALS
  Company Number: AT-ASTELLAS-2024US017443

PATIENT
  Age: 50 Year
  Sex: Male

DRUGS (9)
  1. ENVARSUS XR [Suspect]
     Active Substance: TACROLIMUS
     Indication: Liver transplant
     Dosage: 5 MG/DAILY, EXTENDED RELEASE FORMULATION
     Route: 048
     Dates: start: 202206
  2. RISPERIDONE [Concomitant]
     Active Substance: RISPERIDONE
     Indication: Schizophrenia
     Dosage: 4 MG, ONCE DAILY (IN EVENING)
     Route: 065
  3. RISPERIDONE [Concomitant]
     Active Substance: RISPERIDONE
     Dosage: UNK UNK, UNKNOWN FREQ. (GRADUALLY DECREASED)
     Route: 065
  4. QUETIAPINE [Concomitant]
     Active Substance: QUETIAPINE
     Indication: Psychotic symptom
     Dosage: UNK UNK, UNKNOWN FREQ. (GRADUALLY CHANGED)
     Route: 065
  5. QUETIAPINE [Concomitant]
     Active Substance: QUETIAPINE
     Dosage: UNK UNK, UNKNOWN FREQ
     Route: 065
  6. PALIPERIDONE [Concomitant]
     Active Substance: PALIPERIDONE
     Indication: Psychotic symptom
     Dosage: UNK UNK, UNKNOWN FREQ. (GRADUALLY CHANGED)
     Route: 048
  7. PALIPERIDONE [Concomitant]
     Active Substance: PALIPERIDONE
     Dosage: UNK UNK, UNKNOWN FREQ.
     Route: 048
  8. PALIPERIDONE [Concomitant]
     Active Substance: PALIPERIDONE
     Indication: Psychotic symptom
     Dosage: UNK UNK, UNKNOWN FREQ. (GRADUALLY CHANGED)
  9. PALIPERIDONE [Concomitant]
     Active Substance: PALIPERIDONE
     Dosage: UNK UNK, UNKNOWN FREQ.
     Route: 065

REACTIONS (1)
  - Psychotic disorder [Recovered/Resolved]

NARRATIVE: CASE EVENT DATE: 20220601
